FAERS Safety Report 5309302-8 (Version None)
Quarter: 2007Q2

REPORT INFORMATION
  Report Type: 
  Country: None (occurrence: None)
  Receive Date: 20070424
  Receipt Date: 20070424
  Transmission Date: 20071010
  Serious: Yes (Life-Threatening)
  Sender: FDA-Public Use
  Company Number: None

PATIENT
  Sex: Female
  Weight: 52.1637 kg

DRUGS (8)
  1. LAMICTAL [Suspect]
     Dosage: 50MG, QD, PO
     Route: 048
     Dates: start: 20070320, end: 20070420
  2. ALLEGRA [Concomitant]
  3. LORTAB [Concomitant]
  4. IV CLAFORIN [Concomitant]
  5. PLAQUENIL [Concomitant]
  6. CORTISOL [Concomitant]
  7. ACIDOLPHILUS [Concomitant]
  8. DIFLUCAN [Concomitant]

REACTIONS (3)
  - ERYTHEMA [None]
  - PRURITUS [None]
  - RASH [None]
